FAERS Safety Report 4907220-8 (Version None)
Quarter: 2006Q1

REPORT INFORMATION
  Report Type: 
  Country: None (occurrence: None)
  Receive Date: 20060207
  Receipt Date: 20060126
  Transmission Date: 20060701
  Serious: Yes (Hospitalization, Other)
  Sender: FDA-Public Use
  Company Number: A-US2005-11236

PATIENT
  Age: 35 Year
  Sex: Male
  Weight: 77 kg

DRUGS (31)
  1. TRACLEER [Suspect]
     Indication: PULMONARY HYPERTENSION
     Dosage: SEE IMAGE
     Route: 048
     Dates: start: 20020101, end: 20020101
  2. TRACLEER [Suspect]
     Indication: PULMONARY HYPERTENSION
     Dosage: SEE IMAGE
     Route: 048
     Dates: start: 20020801, end: 20051105
  3. ACETAMINOPHEN [Concomitant]
  4. ALBUMIN (HUMAN) [Concomitant]
  5. ALBUTEROL [Concomitant]
  6. IPRATROPIUM BROMIDE [Concomitant]
  7. AMIODARONE HCL [Concomitant]
  8. XANAX [Concomitant]
  9. AZITHROMYCIN [Concomitant]
  10. CEFTRIAXONE [Concomitant]
  11. CIPROFLOXACIN [Concomitant]
  12. DOPAMINE HCL [Concomitant]
  13. LEVONEX (HEPARIN-FRACTION, SODIUM SLAT) [Concomitant]
  14. FLOLAN [Concomitant]
  15. FLUCONAZOLE [Concomitant]
  16. LASIX [Concomitant]
  17. PREVACID [Concomitant]
  18. LORAZEPAM [Concomitant]
  19. MAGNESIUM [Concomitant]
  20. MIDAZOLAM HCL [Concomitant]
  21. METOCLOPRAMIDE [Concomitant]
  22. METOPROLOL (METOPROLOL) [Concomitant]
  23. MORPHINE [Concomitant]
  24. NOREPINEPHRINE BITARTRATE [Concomitant]
  25. PHENYLEPHRINE(PHENYLEPHRINE) [Concomitant]
  26. PIPERACILLIN [Suspect]
  27. PREDNISONE [Concomitant]
  28. PROPOFOL [Concomitant]
  29. SODIUM BICARBONATE IN PLASTIC CONTAINER [Concomitant]
  30. SILDENAFIL CITRATE [Concomitant]
  31. SULFAMETHOXAZOLE [Concomitant]

REACTIONS (17)
  - ALANINE AMINOTRANSFERASE INCREASED [None]
  - ANAEMIA [None]
  - ASPARTATE AMINOTRANSFERASE INCREASED [None]
  - ATRIAL FIBRILLATION [None]
  - BLOOD BILIRUBIN INCREASED [None]
  - BLOOD CREATINE PHOSPHOKINASE INCREASED [None]
  - BLOOD CREATINE PHOSPHOKINASE MB INCREASED [None]
  - FLUID OVERLOAD [None]
  - HEPATIC TRAUMA [None]
  - HYPOTENSION [None]
  - LIVER FUNCTION TEST ABNORMAL [None]
  - PSEUDOMONAL SEPSIS [None]
  - RENAL FAILURE [None]
  - RESPIRATORY FAILURE [None]
  - SPUTUM CULTURE POSITIVE [None]
  - STENOTROPHOMONAS INFECTION [None]
  - TROPONIN I INCREASED [None]
